FAERS Safety Report 7811354-8 (Version None)
Quarter: 2011Q4

REPORT INFORMATION
  Report Type: 
  Country: None (occurrence: None)
  Receive Date: 20111012
  Receipt Date: 20111012
  Transmission Date: 20120403
  Serious: No
  Sender: FDA-Public Use
  Company Number: None

PATIENT

DRUGS (2)
  1. CAPZASIN-HP [Suspect]
     Indication: ARTHRITIS
     Dates: start: 20110926, end: 20110926
  2. CAPZASIN-HP [Suspect]
     Indication: ANALGESIC THERAPY
     Dates: start: 20110926, end: 20110926

REACTIONS (2)
  - APPLICATION SITE PAIN [None]
  - APPLICATION SITE ERYTHEMA [None]
